FAERS Safety Report 19425708 (Version 1)
Quarter: 2021Q2

REPORT INFORMATION
  Report Type: Spontaneous
  Country: US (occurrence: US)
  Receive Date: 20210616
  Receipt Date: 20210616
  Transmission Date: 20210717
  Serious: Yes (Hospitalization)
  Sender: FDA-Public Use
  Company Number: US-PFIZER INC-2021635765

PATIENT
  Sex: Female
  Weight: 55.34 kg

DRUGS (3)
  1. PREMARIN [Suspect]
     Active Substance: ESTROGENS, CONJUGATED
     Indication: HYSTERECTOMY
     Dosage: 0.625 MG, 1X/DAY
     Route: 048
  2. PREMARIN [Concomitant]
     Active Substance: ESTROGENS, CONJUGATED
     Indication: HYSTERECTOMY
     Dosage: INSERT APPLICATOR FULL IN VAGINA TWICE A WEEK AND THEN BY HAND TO OUTSIDE AREA AS NEEDED.
  3. PREMARIN [Concomitant]
     Active Substance: ESTROGENS, CONJUGATED
     Indication: INCONTINENCE

REACTIONS (5)
  - Feeling abnormal [Recovered/Resolved]
  - Underdose [Not Recovered/Not Resolved]
  - Dizziness [Recovered/Resolved]
  - Eating disorder [Recovered/Resolved]
  - Ovarian cyst [Recovered/Resolved]
